FAERS Safety Report 25597070 (Version 1)
Quarter: 2025Q3

REPORT INFORMATION
  Report Type: Spontaneous
  Country: JP (occurrence: JP)
  Receive Date: 20250723
  Receipt Date: 20250723
  Transmission Date: 20251020
  Serious: Yes (Hospitalization)
  Sender: EISAI
  Company Number: JP-Eisai-202504833_LEN-EC_P_1

PATIENT
  Age: 76 Year
  Sex: Female

DRUGS (2)
  1. LENVIMA [Suspect]
     Active Substance: LENVATINIB
     Indication: Endometrial cancer
     Dates: start: 20250422, end: 20250522
  2. KEYTRUDA [Suspect]
     Active Substance: PEMBROLIZUMAB
     Indication: Endometrial cancer
     Dates: start: 20250422, end: 20250522

REACTIONS (6)
  - Malaise [Unknown]
  - Decreased appetite [Unknown]
  - Interstitial lung disease [Not Recovered/Not Resolved]
  - Thyroiditis [Recovering/Resolving]
  - Nasopharyngitis [Unknown]
  - Urticaria [Unknown]

NARRATIVE: CASE EVENT DATE: 20250101
